FAERS Safety Report 5208426-3 (Version None)
Quarter: 2006Q4

REPORT INFORMATION
  Report Type: 
  Country: None (occurrence: None)
  Receive Date: 20061026
  Receipt Date: 20060825
  Transmission Date: 20070319
  Serious: No
  Sender: FDA-Public Use
  Company Number: 2006099302

PATIENT
  Age: 46 Year
  Sex: Female
  Weight: 53.0709 kg

DRUGS (4)
  1. LYRICA [Suspect]
     Indication: NEURALGIA
     Dosage: 150 MG (75 MG,2 IN 1 D)
     Dates: start: 20060803, end: 20060810
  2. NEURONTIN [Suspect]
     Indication: NEURALGIA
     Dosage: 600 MG (300 MG,2 IN 1 D)
     Dates: start: 20060709
  3. ULTRAM [Concomitant]
  4. MULTI-VITAMINS [Concomitant]

REACTIONS (9)
  - AMENORRHOEA [None]
  - DIZZINESS [None]
  - DRUG INEFFECTIVE [None]
  - DRY MOUTH [None]
  - DYSPNOEA [None]
  - FATIGUE [None]
  - HEADACHE [None]
  - SINUS CONGESTION [None]
  - SINUS DISORDER [None]
